FAERS Safety Report 7376904-7 (Version None)
Quarter: 2011Q1

REPORT INFORMATION
  Report Type: 
  Country: None (occurrence: None)
  Receive Date: 20110327
  Receipt Date: 20110321
  Transmission Date: 20110831
  Serious: Yes (Other)
  Sender: FDA-Public Use
  Company Number: US-BRISTOL-MYERS SQUIBB COMPANY-15621592

PATIENT
  Age: 60 Year
  Sex: Female

DRUGS (8)
  1. DIOVAN [Suspect]
  2. HYDROCHLOROTHIAZIDE [Suspect]
  3. METOPROLOL [Suspect]
  4. SIMVASTATIN [Concomitant]
  5. METFORMIN HCL [Suspect]
     Indication: DIABETES MELLITUS
     Dosage: STARTED 3-4 YEARS AGO
  6. METFORMIN HCL [Concomitant]
  7. ASPIRIN [Concomitant]
  8. PLAVIX [Concomitant]

REACTIONS (4)
  - ANAEMIA VITAMIN B12 DEFICIENCY [None]
  - CORONARY ARTERY OCCLUSION [None]
  - DYSPEPSIA [None]
  - HYPERTENSION [None]
